FAERS Safety Report 5745384-7 (Version None)
Quarter: 2008Q2

REPORT INFORMATION
  Report Type: 
  Country: None (occurrence: None)
  Receive Date: 20080521
  Receipt Date: 20080516
  Transmission Date: 20081010
  Serious: Yes (Hospitalization)
  Sender: FDA-Public Use
  Company Number: FR-TEVA-171711ISR

PATIENT
  Sex: Female

DRUGS (3)
  1. VINCRISTINE SULFATE [Suspect]
     Route: 042
     Dates: start: 20080219
  2. LOMUSTINE [Suspect]
     Route: 042
     Dates: start: 20080212
  3. PROCARBAZINE HYDROCHLORIDE [Suspect]
     Route: 048
     Dates: start: 20080220, end: 20080304

REACTIONS (5)
  - ASTHENIA [None]
  - CHOLESTASIS [None]
  - CYTOLYTIC HEPATITIS [None]
  - HEPATITIS ACUTE [None]
  - JAUNDICE [None]
